FAERS Safety Report 11010307 (Version 2)
Quarter: 2015Q2

REPORT INFORMATION
  Report Type: Spontaneous
  Country: SE (occurrence: SE)
  Receive Date: 20150410
  Receipt Date: 20150420
  Transmission Date: 20150821
  Serious: Yes (Other)
  Sender: FDA-Public Use
  Company Number: SE-ACTAVIS-2015-07773

PATIENT
  Age: 45 Year
  Sex: Female

DRUGS (4)
  1. ANTABUSE [Suspect]
     Active Substance: DISULFIRAM
     Dosage: 600 MG, DAILY
     Route: 048
     Dates: start: 20150209, end: 20150211
  2. ANTABUSE [Suspect]
     Active Substance: DISULFIRAM
     Dosage: 600 MG, 2/WEEK
     Route: 048
     Dates: start: 20150212, end: 20150326
  3. PROPAVAN [Concomitant]
     Active Substance: PROPIOMAZINE
     Indication: PRODUCT USED FOR UNKNOWN INDICATION
     Dosage: UNKNOWN DOSE AS NEEDED
     Route: 065
  4. ANTABUSE [Suspect]
     Active Substance: DISULFIRAM
     Indication: ALCOHOL ABUSE
     Dosage: 400 MG, 2/WEEK
     Route: 048
     Dates: start: 20150327

REACTIONS (2)
  - Aspartate aminotransferase increased [Recovering/Resolving]
  - Alanine aminotransferase increased [Recovering/Resolving]
